FAERS Safety Report 7210951-0 (Version None)
Quarter: 2011Q1

REPORT INFORMATION
  Report Type: 
  Country: None (occurrence: None)
  Receive Date: 20110105
  Receipt Date: 20101230
  Transmission Date: 20110831
  Serious: Yes (Hospitalization)
  Sender: FDA-Public Use
  Company Number: A0894274A

PATIENT
  Age: 74 Year
  Sex: Female

DRUGS (10)
  1. ADVAIR [Suspect]
     Indication: CHRONIC OBSTRUCTIVE PULMONARY DISEASE
     Dosage: 2PUFF TWICE PER DAY
     Route: 055
     Dates: start: 20091201
  2. LISINOPRIL [Concomitant]
  3. FLUTICASONE PROPIONATE [Concomitant]
  4. ADVAIR [Suspect]
     Route: 055
     Dates: start: 20101218
  5. PREDNISONE [Concomitant]
  6. OXYGEN [Concomitant]
  7. VENTOLIN HFA [Concomitant]
  8. METOPROLOL TARTRATE [Concomitant]
  9. AMLODIPINE [Concomitant]
  10. SPIRIVA [Concomitant]

REACTIONS (3)
  - NON-CARDIAC CHEST PAIN [None]
  - NASAL CONGESTION [None]
  - HYPOVENTILATION [None]
